FAERS Safety Report 5895332-4 (Version None)
Quarter: 2008Q3

REPORT INFORMATION
  Report Type: 
  Country: None (occurrence: None)
  Receive Date: 20080924
  Receipt Date: 20080915
  Transmission Date: 20090109
  Serious: Yes (Other)
  Sender: FDA-Public Use
  Company Number: GB-ASTRAZENECA-2008AC02485

PATIENT
  Sex: Female

DRUGS (2)
  1. PROPOFOL [Suspect]
     Indication: SEDATION
  2. REMIFENTANIL [Concomitant]

REACTIONS (1)
  - COAGULOPATHY [None]
